FAERS Safety Report 4601553-0 (Version None)
Quarter: 2005Q1

REPORT INFORMATION
  Report Type: 
  Country: None (occurrence: None)
  Receive Date: 20050131
  Receipt Date: 20041111
  Transmission Date: 20050727
  Serious: No
  Sender: FDA-Public Use
  Company Number: 200418712US

PATIENT
  Age: 23 Year
  Sex: Male

DRUGS (5)
  1. KETEK [Suspect]
     Indication: COUGH
     Dosage: 400 MG BID PO
     Route: 048
     Dates: start: 20040917, end: 20040917
  2. KETEK [Suspect]
     Indication: HYPERSENSITIVITY
     Dosage: 400 MG BID PO
     Route: 048
     Dates: start: 20040917, end: 20040917
  3. KETEK [Suspect]
     Indication: INFECTION
     Dosage: 400 MG BID PO
     Route: 048
     Dates: start: 20040917, end: 20040917
  4. SEIZURE MEDICATION (NOS) [Concomitant]
  5. CHEMO PILLS (NOS) [Concomitant]

REACTIONS (2)
  - DYSPNOEA [None]
  - HEADACHE [None]
